FAERS Safety Report 23295352 (Version 3)
Quarter: 2024Q1

REPORT INFORMATION
  Report Type: Spontaneous
  Country: GB (occurrence: GB)
  Receive Date: 20231214
  Receipt Date: 20240105
  Transmission Date: 20240410
  Serious: Yes (Other)
  Sender: FDA-Public Use
  Company Number: GB-JNJFOC-20231229244

PATIENT
  Age: 82 Year
  Sex: Female
  Weight: 124.5 kg

DRUGS (1)
  1. SIMPONI [Suspect]
     Active Substance: GOLIMUMAB
     Indication: Rheumatoid arthritis
     Route: 058

REACTIONS (4)
  - Lower respiratory tract infection [Not Recovered/Not Resolved]
  - Sinusitis [Unknown]
  - Cough [Unknown]
  - Nasopharyngitis [Unknown]

NARRATIVE: CASE EVENT DATE: 20231001
